FAERS Safety Report 10357357 (Version 1)
Quarter: 2014Q3

REPORT INFORMATION
  Report Type: Spontaneous
  Country: US (occurrence: US)
  Receive Date: 20140801
  Receipt Date: 20140801
  Transmission Date: 20150326
  Serious: Yes (Other)
  Sender: FDA-Public Use
  Company Number: CHPA2014US010111

PATIENT
  Age: 27 Year
  Sex: Female

DRUGS (3)
  1. EXCEDRIN MIGRAINE [Suspect]
     Active Substance: ACETAMINOPHEN\ASPIRIN\CAFFEINE
     Indication: MIGRAINE
     Dosage: 1 AND SOMETIMES A SECOND ONE, UNK
  2. EXCEDRIN TENSION HEADACHE [Suspect]
     Active Substance: ACETAMINOPHEN\CAFFEINE
  3. EXCEDRIN EXTRA STRENGTH [Suspect]
     Active Substance: ACETAMINOPHEN\ASPIRIN\CAFFEINE
     Indication: HEADACHE
     Dosage: UNK
     Route: 048
     Dates: end: 198912

REACTIONS (7)
  - Perforated ulcer [Not Recovered/Not Resolved]
  - Migraine [Not Recovered/Not Resolved]
  - Underdose [Unknown]
  - Intervertebral disc disorder [Recovered/Resolved]
  - Abdominal pain upper [Recovered/Resolved]
  - Therapeutic response changed [Unknown]
  - Drug ineffective [Unknown]

NARRATIVE: CASE EVENT DATE: 198710
